FAERS Safety Report 7734587-8 (Version None)
Quarter: 2011Q3

REPORT INFORMATION
  Report Type: 
  Country: None (occurrence: None)
  Receive Date: 20110901
  Receipt Date: 20110406
  Transmission Date: 20111222
  Serious: No
  Sender: FDA-Public Use
  Company Number: NXG-11-002

PATIENT

DRUGS (1)
  1. POLYETHYLENE GLYCOL 3350 [Suspect]
     Indication: CONSTIPATION
     Dosage: 17 GM IN 8 OZ WATER/DAY

REACTIONS (2)
  - DIARRHOEA [None]
  - PRODUCT PHYSICAL ISSUE [None]
